FAERS Safety Report 6044490-X (Version None)
Quarter: 2009Q1

REPORT INFORMATION
  Report Type: 
  Country: None (occurrence: None)
  Receive Date: 20090120
  Receipt Date: 20090108
  Transmission Date: 20090719
  Serious: Yes (Other)
  Sender: FDA-Public Use
  Company Number: FR-PFIZER INC-2008160773

PATIENT

DRUGS (3)
  1. LINEZOLID [Suspect]
     Indication: STAPHYLOCOCCAL BACTERAEMIA
     Dosage: 600 MG, 2X/DAY
  2. GENTAMICIN [Concomitant]
  3. RIFAMPICIN [Concomitant]

REACTIONS (1)
  - BONE MARROW TOXICITY [None]
